FAERS Safety Report 12256227 (Version 1)
Quarter: 2016Q2

REPORT INFORMATION
  Report Type: Spontaneous
  Country: US (occurrence: None)
  Receive Date: 20160411
  Receipt Date: 20160411
  Transmission Date: 20160815
  Serious: No
  Sender: FDA-Public Use
  Company Number: None

PATIENT
  Sex: Male

DRUGS (1)
  1. LORATADINE. [Suspect]
     Active Substance: LORATADINE

REACTIONS (6)
  - Musculoskeletal pain [None]
  - Muscle tightness [None]
  - Activities of daily living impaired [None]
  - Discomfort [None]
  - Exercise tolerance decreased [None]
  - Back pain [None]
